FAERS Safety Report 5953656-6 (Version None)
Quarter: 2008Q4

REPORT INFORMATION
  Report Type: 
  Country: None (occurrence: None)
  Receive Date: 20081114
  Receipt Date: 20081105
  Transmission Date: 20090506
  Serious: Yes (Death, Hospitalization)
  Sender: FDA-Public Use
  Company Number: B0545543A

PATIENT
  Sex: Female

DRUGS (1)
  1. TYVERB [Suspect]
     Route: 065

REACTIONS (4)
  - DYSPNOEA [None]
  - HYPERTONIA [None]
  - PULMONARY HYPERTENSION [None]
  - RIGHT VENTRICULAR FAILURE [None]
